FAERS Safety Report 10597560 (Version 1)
Quarter: 2014Q4

REPORT INFORMATION
  Report Type: Spontaneous
  Country: US (occurrence: None)
  Receive Date: 20141119
  Receipt Date: 20141119
  Transmission Date: 20150529
  Serious: Yes (Hospitalization)
  Sender: FDA-Public Use
  Company Number: NL01PV14.37880

PATIENT
  Age: 14 Year
  Sex: Female

DRUGS (6)
  1. CITALOPRAM (CITALOPRAM) [Concomitant]
     Active Substance: CITALOPRAM HYDROBROMIDE
  2. ESZOPICLONE (ESZOPICLONE) [Suspect]
     Active Substance: ESZOPICLONE
     Indication: SLEEP DISORDER
  3. OLANZAPINE (OLANZAPINE) [Suspect]
     Active Substance: OLANZAPINE
     Indication: ANXIETY
     Dosage: (3 HOURS BEFORE BEDTIME)
  4. HORMONES AND RELATED AGENTS [Suspect]
     Active Substance: UNSPECIFIED INGREDIENT
  5. ZOLPIDEM [Suspect]
     Active Substance: ZOLPIDEM\ZOLPIDEM TARTRATE
     Indication: SLEEP DISORDER
  6. MELATONIN (MELATONIN) [Suspect]
     Active Substance: MELATONIN
     Indication: SLEEP DISORDER

REACTIONS (13)
  - Mental disorder [None]
  - Insomnia [None]
  - Sleep terror [None]
  - Anxiety [None]
  - Weight increased [None]
  - Abnormal behaviour [None]
  - Condition aggravated [None]
  - Hallucination, auditory [None]
  - Emotional distress [None]
  - Fear [None]
  - Abnormal dreams [None]
  - Somnolence [None]
  - Delirium [None]
